FAERS Safety Report 25831533 (Version 1)
Quarter: 2025Q3

REPORT INFORMATION
  Report Type: Spontaneous
  Country: US (occurrence: US)
  Receive Date: 20250922
  Receipt Date: 20250922
  Transmission Date: 20251020
  Serious: No
  Sender: KYOWA
  Company Number: US-KYOWAKIRIN-2025KK017909

PATIENT

DRUGS (4)
  1. CRYSVITA [Suspect]
     Active Substance: BUROSUMAB-TWZA
     Indication: Hereditary hypophosphataemic rickets
     Route: 065
  2. CRYSVITA [Suspect]
     Active Substance: BUROSUMAB-TWZA
     Dosage: 10 MG, 1X/4 WEEKS (JULY OR AUG 20205)
     Route: 058
     Dates: start: 2025, end: 2025
  3. SODIUM PHOSPHATE [Suspect]
     Active Substance: SODIUM PHOSPHATE
     Indication: Hereditary hypophosphataemic rickets
     Dosage: UNK, QD
     Route: 048
  4. VITAMIN D NOS [Suspect]
     Active Substance: CHOLECALCIFEROL\ERGOCALCIFEROL
     Indication: Hereditary hypophosphataemic rickets
     Dosage: UNK, QD
     Route: 048

REACTIONS (3)
  - Pain [Unknown]
  - Back pain [Unknown]
  - Contraindicated product administered [Unknown]
